FAERS Safety Report 6874138-3 (Version None)
Quarter: 2010Q3

REPORT INFORMATION
  Report Type: 
  Country: None (occurrence: None)
  Receive Date: 20100723
  Receipt Date: 20090506
  Transmission Date: 20110219
  Serious: Yes (Other)
  Sender: FDA-Public Use
  Company Number: US-PFIZER INC-2009202274

PATIENT
  Sex: Female
  Weight: 86.168 kg

DRUGS (1)
  1. CHANTIX [Suspect]
     Indication: NICOTINE DEPENDENCE
     Dosage: 0.5 MG, 2X/DAY
     Route: 048
     Dates: start: 20090401, end: 20090426

REACTIONS (6)
  - ABDOMINAL PAIN [None]
  - DRUG ADMINISTRATION ERROR [None]
  - HEADACHE [None]
  - SUPRAPUBIC PAIN [None]
  - TONGUE DISORDER [None]
  - VISUAL FIELD DEFECT [None]
